FAERS Safety Report 5295059-6 (Version None)
Quarter: 2007Q2

REPORT INFORMATION
  Report Type: 
  Country: None (occurrence: None)
  Receive Date: 20070412
  Receipt Date: 20070323
  Transmission Date: 20071010
  Serious: Yes (Death, Hospitalization)
  Sender: FDA-Public Use
  Company Number: HQWYE865109DEC04

PATIENT
  Sex: Male
  Weight: 66 kg

DRUGS (4)
  1. RAPAMUNE [Suspect]
     Indication: IMMUNOSUPPRESSANT DRUG THERAPY
     Dosage: UNSPECIFIED
     Route: 065
     Dates: start: 20040726, end: 20040909
  2. RAPAMUNE [Suspect]
     Indication: PROPHYLAXIS AGAINST TRANSPLANT REJECTION
  3. LAMIVUDINE [Concomitant]
     Dates: start: 20040825, end: 20041120
  4. AMIODARONE HCL [Concomitant]
     Route: 048
     Dates: start: 20041006, end: 20041120

REACTIONS (1)
  - CEREBROVASCULAR ACCIDENT [None]
